FAERS Safety Report 7126428-7 (Version None)
Quarter: 2010Q4

REPORT INFORMATION
  Report Type: 
  Country: None (occurrence: None)
  Receive Date: 20101129
  Receipt Date: 20101118
  Transmission Date: 20110411
  Serious: Yes (Other)
  Sender: FDA-Public Use
  Company Number: US-JNJFOC-20071103518

PATIENT
  Sex: Female
  Weight: 61.46 kg

DRUGS (1)
  1. ORTHO EVRA [Suspect]
     Indication: CONTRACEPTION
     Route: 062
     Dates: start: 20040701, end: 20061101

REACTIONS (7)
  - ARRHYTHMIA [None]
  - CHEST PAIN [None]
  - MYOCARDIAL INFARCTION [None]
  - PALPITATIONS [None]
  - PARAESTHESIA [None]
  - PRESYNCOPE [None]
  - TACHYCARDIA [None]
